FAERS Safety Report 4957022-1 (Version None)
Quarter: 2006Q1

REPORT INFORMATION
  Report Type: 
  Country: None (occurrence: None)
  Receive Date: 20060329
  Receipt Date: 20060321
  Transmission Date: 20060701
  Serious: Yes (Hospitalization)
  Sender: FDA-Public Use
  Company Number: US-JNJFOC-20060306398

PATIENT
  Sex: Female
  Weight: 47.63 kg

DRUGS (5)
  1. DURAGESIC-100 [Suspect]
     Route: 062
  2. VICODIN [Concomitant]
     Route: 048
  3. VICODIN [Concomitant]
     Indication: PAIN
     Dosage: 7.5 MG HYDROCODONE/ 750 MG ACETAMINOPHEN, 1 EVERY 8 HOURS AS NEEDED, ORAL
     Route: 048
  4. BACLOFEN [Concomitant]
     Indication: HYPERSENSITIVITY
     Dosage: 20 MG, 1 EVERY 6 HOURS, AS NEEDED, ORAL
     Route: 048
  5. SOMA [Concomitant]
     Indication: PAIN
     Dosage: 350 MG, 1 EVERY 8 HOURS, AS NEEDED, ORAL
     Route: 048

REACTIONS (1)
  - ABDOMINAL WALL DISORDER [None]
